FAERS Safety Report 11057460 (Version 1)
Quarter: 2015Q2

REPORT INFORMATION
  Report Type: Spontaneous
  Country: RO (occurrence: RO)
  Receive Date: 20150422
  Receipt Date: 20150422
  Transmission Date: 20150821
  Serious: Yes (Hospitalization, Other)
  Sender: FDA-Public Use
  Company Number: RO-B.I. PHARMACEUTICALS,INC./RIDGEFIELD-2015-BI-21192GD

PATIENT
  Age: 64 Year
  Sex: Male

DRUGS (8)
  1. BISEPTOL [Suspect]
     Active Substance: SULFAMETHOXAZOLE\TRIMETHOPRIM
     Indication: URINARY TRACT INFECTION
     Dosage: TMP-SMX 120/2400 MG
     Route: 048
  2. CELECOXIB. [Suspect]
     Active Substance: CELECOXIB
     Indication: PAIN IN EXTREMITY
     Dosage: 200 MG
     Route: 065
  3. KETOROLAC [Suspect]
     Active Substance: KETOROLAC\KETOROLAC TROMETHAMINE
     Indication: PAIN IN EXTREMITY
     Dosage: 30 MG/ML, 2 VIALS PER DAY
     Route: 051
  4. ALGOCALMIN [Suspect]
     Active Substance: METAMIZOLE SODIUM
     Indication: PAIN IN EXTREMITY
     Dosage: 1000 MG
     Route: 048
  5. ANTINEVRALGIC [Suspect]
     Active Substance: ASPIRIN\CAFFEINE\PHENACETIN
     Indication: PAIN IN EXTREMITY
     Dosage: 2 PILLS/DAY; ACETYL SALYCILIC ACID 500 MG + PHENACETINE 300 MG + CAFFEINE 100 MG
     Route: 048
  6. MELOXICAM. [Suspect]
     Active Substance: MELOXICAM
     Indication: PAIN IN EXTREMITY
     Dosage: 30 MG
     Route: 051
  7. PIROXICAM. [Suspect]
     Active Substance: PIROXICAM
     Indication: PAIN IN EXTREMITY
     Dosage: 20 MG
     Route: 065
  8. IBUPROFEN. [Suspect]
     Active Substance: IBUPROFEN
     Indication: PAIN IN EXTREMITY
     Dosage: 200 MG
     Route: 065

REACTIONS (7)
  - Drug interaction [Unknown]
  - Rhabdomyolysis [Unknown]
  - Hyperuricaemia [Unknown]
  - Acidosis [Unknown]
  - Hypocalcaemia [Unknown]
  - Hyponatraemia [Unknown]
  - Product use issue [Unknown]
